FAERS Safety Report 9306837 (Version 2)
Quarter: 2013Q2

REPORT INFORMATION
  Report Type: Other
  Country: NO (occurrence: NO)
  Receive Date: 20130523
  Receipt Date: 20130619
  Transmission Date: 20140414
  Serious: Yes (Life-Threatening)
  Sender: FDA-Public Use
  Company Number: NO-ACTAVIS-2013-09422

PATIENT
  Age: 58 Year
  Sex: Male

DRUGS (10)
  1. PARACETAMOL (UNKNOWN) [Suspect]
     Indication: POST-TRAUMATIC HEADACHE
     Dosage: 1 G, QID
     Route: 048
     Dates: end: 20130404
  2. IBUX [Suspect]
     Indication: POST-TRAUMATIC HEADACHE
     Dosage: 600 MG, QID
     Route: 048
     Dates: end: 20130404
  3. LYRICA [Suspect]
     Indication: POST-TRAUMATIC HEADACHE
     Dosage: 300 MG, BID
     Route: 065
     Dates: start: 2011, end: 20130404
  4. METFORMIN                          /00082702/ [Concomitant]
     Indication: PRODUCT USED FOR UNKNOWN INDICATION
     Dosage: 500 MG, DAILY
     Route: 065
     Dates: end: 201304
  5. SIMVASTATIN [Concomitant]
     Indication: PRODUCT USED FOR UNKNOWN INDICATION
     Dosage: 40 MG, DAILY
     Route: 065
     Dates: end: 201304
  6. SAROTEX [Concomitant]
     Indication: POST-TRAUMATIC HEADACHE
     Dosage: 50 MG, PRN
     Route: 065
  7. FURIX [Concomitant]
     Indication: PRODUCT USED FOR UNKNOWN INDICATION
     Dosage: 20 MG, DAILY
     Route: 065
     Dates: end: 201304
  8. LAXOBERAL [Concomitant]
     Indication: PRODUCT USED FOR UNKNOWN INDICATION
     Dosage: 10 GTT, DAILY
     Route: 065
  9. MOVICOL                            /01625101/ [Concomitant]
     Indication: PRODUCT USED FOR UNKNOWN INDICATION
     Dosage: 1 DF, DAILY
     Route: 065
  10. NEXIUM                             /01479302/ [Concomitant]
     Indication: PRODUCT USED FOR UNKNOWN INDICATION
     Dosage: 40 MG, DAILY
     Route: 065
     Dates: end: 201304

REACTIONS (5)
  - Renal failure acute [Recovered/Resolved]
  - Drug interaction [None]
  - Dialysis [None]
  - Tubulointerstitial nephritis [None]
  - Crystal urine [None]
